FAERS Safety Report 5388683-3 (Version None)
Quarter: 2007Q3

REPORT INFORMATION
  Report Type: 
  Country: None (occurrence: None)
  Receive Date: 20070712
  Receipt Date: 20070627
  Transmission Date: 20080115
  Serious: Yes (Death, Hospitalization)
  Sender: FDA-Public Use
  Company Number: 158288ISR

PATIENT
  Age: 53 Year
  Sex: Male

DRUGS (2)
  1. CISPLATIN [Suspect]
     Dosage: EVERY 21 DAYS (75 MG/M2)
  2. DOCETAXEL [Suspect]
     Dosage: EVERY 21 DAYS (75 MG/ML)

REACTIONS (7)
  - CARDIAC ARREST [None]
  - GASTROINTESTINAL NECROSIS [None]
  - HAEMATOCRIT DECREASED [None]
  - HAEMOGLOBIN DECREASED [None]
  - INTESTINAL ISCHAEMIA [None]
  - LYMPHADENOPATHY [None]
  - PNEUMATOSIS INTESTINALIS [None]
